FAERS Safety Report 10370442 (Version 1)
Quarter: 2014Q3

REPORT INFORMATION
  Report Type: Spontaneous
  Country: US (occurrence: US)
  Receive Date: 20140808
  Receipt Date: 20140808
  Transmission Date: 20150326
  Serious: No
  Sender: FDA-Public Use
  Company Number: US-TEVA-498033USA

PATIENT

DRUGS (2)
  1. MODAFINIL. [Suspect]
     Active Substance: MODAFINIL
  2. ARMODAFINIL. [Suspect]
     Active Substance: ARMODAFINIL

REACTIONS (1)
  - Impulse-control disorder [Unknown]
